FAERS Safety Report 9968995 (Version 1)
Quarter: 2014Q1

REPORT INFORMATION
  Report Type: Report from Study
  Country: US (occurrence: US)
  Receive Date: 20140306
  Receipt Date: 20140306
  Transmission Date: 20141002
  Serious: No
  Sender: FDA-Public Use
  Company Number: US-ABBVIE-13P-163-1144123-00

PATIENT
  Age: 48 Year
  Sex: Female

DRUGS (5)
  1. HUMIRA [Suspect]
     Indication: COLITIS ULCERATIVE
     Dates: start: 20130731, end: 20130731
  2. HUMIRA [Suspect]
  3. HUMIRA [Suspect]
  4. LIALDA [Concomitant]
     Indication: COLITIS ULCERATIVE
  5. XANAX [Concomitant]
     Indication: ANXIETY
     Dosage: IN THE MORNING

REACTIONS (2)
  - Ear pain [Unknown]
  - Urinary tract infection [Not Recovered/Not Resolved]
